FAERS Safety Report 23749489 (Version 1)
Quarter: 2024Q2

REPORT INFORMATION
  Report Type: Spontaneous
  Country: US (occurrence: US)
  Receive Date: 20240416
  Receipt Date: 20240416
  Transmission Date: 20240716
  Serious: No
  Sender: FDA-Public Use
  Company Number: US-Lyne Laboratories Inc.-2155628

PATIENT
  Sex: Female

DRUGS (1)
  1. BENZOYL PEROXIDE\ERYTHROMYCIN [Suspect]
     Active Substance: BENZOYL PEROXIDE\ERYTHROMYCIN
     Route: 061

REACTIONS (1)
  - Drug ineffective [Unknown]
